FAERS Safety Report 17007377 (Version 5)
Quarter: 2022Q1

REPORT INFORMATION
  Report Type: Other
  Country: IT (occurrence: None)
  Receive Date: 20191108
  Receipt Date: 20220124
  Transmission Date: 20220423
  Serious: Yes (Other)
  Sender: FDA-Public Use
  Company Number: IT-ROCHE-2464699

PATIENT

DRUGS (2)
  1. RITUXIMAB [Suspect]
     Active Substance: RITUXIMAB
     Indication: Chronic lymphocytic leukaemia
     Route: 042
  2. IBRUTINIB [Suspect]
     Active Substance: IBRUTINIB
     Indication: Chronic lymphocytic leukaemia
     Route: 048

REACTIONS (31)
  - Infection [Unknown]
  - Cardiac disorder [Unknown]
  - Atrial fibrillation [Unknown]
  - Haemorrhage [Unknown]
  - Subdural haematoma [Unknown]
  - Febrile neutropenia [Unknown]
  - Pyrexia [Unknown]
  - Anaemia [Unknown]
  - Neutropenia [Unknown]
  - Thrombocytopenia [Unknown]
  - Neutrophilia [Unknown]
  - Cardiac failure [Unknown]
  - Bradycardia [Unknown]
  - Diarrhoea [Unknown]
  - Gastritis [Unknown]
  - Cerebral haemorrhage [Unknown]
  - Contusion [Unknown]
  - Ecchymosis [Unknown]
  - Mucosal haemorrhage [Unknown]
  - Haematoma [Unknown]
  - Rash [Unknown]
  - Infusion related reaction [Unknown]
  - Fatigue [Unknown]
  - Headache [Unknown]
  - Oedema [Unknown]
  - Pain [Unknown]
  - Arthralgia [Unknown]
  - Myalgia [Unknown]
  - Metabolic disorder [Unknown]
  - Granulocytopenia [Unknown]
  - Depression [Unknown]
